FAERS Safety Report 20675135 (Version 2)
Quarter: 2022Q2

REPORT INFORMATION
  Report Type: Spontaneous
  Country: FR (occurrence: FR)
  Receive Date: 20220405
  Receipt Date: 20220407
  Transmission Date: 20220721
  Serious: Yes (Death, Hospitalization, Other)
  Sender: FDA-Public Use
  Company Number: None

PATIENT
  Age: 75 Year
  Sex: Male
  Weight: 100 kg

DRUGS (12)
  1. COMIRNATY [Suspect]
     Active Substance: TOZINAMERAN
     Indication: COVID-19 immunisation
     Dosage: DOSE 3 (BOOSTER), SINGLE
     Route: 030
     Dates: start: 20210708, end: 20210708
  2. COMIRNATY [Suspect]
     Active Substance: TOZINAMERAN
     Dosage: DOSE 2, SINGLE
     Route: 030
     Dates: start: 20210424, end: 20210424
  3. COMIRNATY [Suspect]
     Active Substance: TOZINAMERAN
     Dosage: DOSE 1, SINGLE
     Route: 030
     Dates: start: 20210326, end: 20210326
  4. RITUXIMAB [Suspect]
     Active Substance: RITUXIMAB
     Indication: Lymphoma
     Dosage: UNK
     Route: 058
     Dates: start: 20191113, end: 20211020
  5. BACTRIM [Concomitant]
     Active Substance: SULFAMETHOXAZOLE\TRIMETHOPRIM
     Dosage: UNK UNK, 3X/DAY (MON, WED, FRI)
  6. LEUCOVORIN CALCIUM [Concomitant]
     Active Substance: LEUCOVORIN CALCIUM
     Dosage: 1X/WEEK (ON SUNDAY)
  7. VALACYCLOVIR HYDROCHLORIDE [Concomitant]
     Active Substance: VALACYCLOVIR HYDROCHLORIDE
     Dosage: 500 MG, 1-0-1
  8. BISOPROLOL [Concomitant]
     Active Substance: BISOPROLOL
  9. LERCANIDIPINE [Concomitant]
     Active Substance: LERCANIDIPINE
     Dosage: UNK
  10. WARFARIN SODIUM [Concomitant]
     Active Substance: WARFARIN SODIUM
     Dosage: UNK
  11. INCRUSE ELLIPTA [Concomitant]
     Active Substance: UMECLIDINIUM BROMIDE
     Dosage: UNK
  12. EPREX [Concomitant]
     Active Substance: ERYTHROPOIETIN
     Dosage: 30000/UI, 1X/WEEK
     Route: 058

REACTIONS (7)
  - Vaccination failure [Fatal]
  - COVID-19 pneumonia [Fatal]
  - Respiratory failure [Fatal]
  - Acute kidney injury [Fatal]
  - Septic shock [Fatal]
  - Hypoxia [Fatal]
  - Hyperkalaemia [Fatal]

NARRATIVE: CASE EVENT DATE: 20220201
